FAERS Safety Report 23073168 (Version 1)
Quarter: 2023Q4

REPORT INFORMATION
  Report Type: Spontaneous
  Country: JP (occurrence: JP)
  Receive Date: 20231017
  Receipt Date: 20231017
  Transmission Date: 20240110
  Serious: Yes (Other)
  Sender: FDA-Public Use
  Company Number: JP-002147023-NVSJ2022JP100546

PATIENT
  Sex: Male
  Weight: 1.65 kg

DRUGS (12)
  1. AMLODIPINE [Suspect]
     Active Substance: AMLODIPINE BESYLATE
     Indication: Foetal exposure during pregnancy
     Dosage: 50 MG, QD, MATERNAL EXPOSURE DURING PREGNANCY
     Route: 064
     Dates: start: 20210308, end: 20211117
  2. BONALON [Suspect]
     Active Substance: ALENDRONATE SODIUM
     Indication: Foetal exposure during pregnancy
     Dosage: 35 MG, QW, MATERNAL EXPOSURE DURING PREGNANCY
     Route: 064
     Dates: start: 20200812
  3. CLARITIN [Suspect]
     Active Substance: LORATADINE
     Indication: Foetal exposure during pregnancy
     Dosage: 10 MG, BID
     Route: 064
     Dates: start: 20211122, end: 20220614
  4. LOSARTAN POTASSIUM [Suspect]
     Active Substance: LOSARTAN POTASSIUM
     Indication: Foetal exposure during pregnancy
     Dosage: 50 MG, QD, MATERNAL EXPOSURE DURING PREGNANCY
     Route: 064
     Dates: start: 20210104, end: 20211117
  5. NIFEDIPINE [Suspect]
     Active Substance: NIFEDIPINE
     Indication: Foetal exposure during pregnancy
     Dosage: 20 MG, QD
     Route: 064
     Dates: start: 20220428
  6. NEORAL [Suspect]
     Active Substance: CYCLOSPORINE
     Dosage: 200 MG, QD
     Route: 064
     Dates: start: 20201109
  7. NEORAL [Suspect]
     Active Substance: CYCLOSPORINE
     Indication: Foetal exposure during pregnancy
     Dosage: 225 MG
     Route: 064
  8. PREDONINE [Suspect]
     Active Substance: PREDNISOLONE
     Indication: Foetal exposure during pregnancy
     Dosage: 15 MG
     Route: 064
  9. PREDONINE [Suspect]
     Active Substance: PREDNISOLONE
     Dosage: 5 MG, QD
     Route: 064
  10. PREDONINE [Suspect]
     Active Substance: PREDNISOLONE
     Dosage: 8 MG, QD, MATERNAL EXPOSURE DURING PREGNANCY
     Route: 064
     Dates: start: 20200812, end: 20211117
  11. LAFUTIDINE [Suspect]
     Active Substance: LAFUTIDINE
     Indication: Foetal exposure during pregnancy
     Dosage: 10 MG, BID, MATERNAL EXPOSURE DURING PREGNANCY
     Route: 064
     Dates: start: 20200727
  12. RUPAFIN [Suspect]
     Active Substance: RUPATADINE FUMARATE
     Indication: Foetal exposure during pregnancy
     Dosage: 10 MG, BID, MATERNAL EXPOSURE DURING PREGNANCY
     Route: 064
     Dates: start: 20200727, end: 20211117

REACTIONS (6)
  - Foetal growth restriction [Unknown]
  - Low birth weight baby [Unknown]
  - Premature baby [Unknown]
  - Motor developmental delay [Not Recovered/Not Resolved]
  - Foetal exposure during pregnancy [Unknown]
  - Exposure via breast milk [Unknown]

NARRATIVE: CASE EVENT DATE: 20220610
